FAERS Safety Report 6031688-X (Version None)
Quarter: 2009Q1

REPORT INFORMATION
  Report Type: 
  Country: None (occurrence: None)
  Receive Date: 20090108
  Receipt Date: 20090105
  Transmission Date: 20090719
  Serious: Yes (Other)
  Sender: FDA-Public Use
  Company Number: A0752407A

PATIENT
  Age: 31 Year
  Sex: Female
  Weight: 70 kg

DRUGS (2)
  1. WELLBUTRIN XL [Suspect]
     Indication: DEPRESSION
     Dosage: 300MG PER DAY
     Route: 048
     Dates: start: 20040101
  2. BUSPIRONE HCL [Concomitant]
     Indication: ANXIETY
     Dosage: 60MG PER DAY
     Dates: start: 20070101, end: 20081001

REACTIONS (3)
  - ABORTION SPONTANEOUS [None]
  - BLIGHTED OVUM [None]
  - DRUG EXPOSURE DURING PREGNANCY [None]
